FAERS Safety Report 6214421-8 (Version None)
Quarter: 2009Q2

REPORT INFORMATION
  Report Type: 
  Country: None (occurrence: None)
  Receive Date: 20090604
  Receipt Date: 20090525
  Transmission Date: 20091009
  Serious: Yes (Other)
  Sender: FDA-Public Use
  Company Number: FR-CELGENEUS-056-50794-09051650

PATIENT
  Sex: Male

DRUGS (3)
  1. AZACITIDINE INJECTABLE [Suspect]
     Route: 058
     Dates: start: 20081021, end: 20081029
  2. AZACITIDINE INJECTABLE [Suspect]
     Route: 058
     Dates: start: 20081124, end: 20081130
  3. AZACITIDINE INJECTABLE [Suspect]
     Route: 058
     Dates: start: 20081223, end: 20081229

REACTIONS (1)
  - ERYTHEMA MULTIFORME [None]
